FAERS Safety Report 9966109 (Version 1)
Quarter: 2014Q1

REPORT INFORMATION
  Report Type: Report from Study
  Country: US (occurrence: US)
  Receive Date: 20140305
  Receipt Date: 20140305
  Transmission Date: 20141002
  Serious: No
  Sender: FDA-Public Use
  Company Number: US-ABBVIE-13P-163-1122150-00

PATIENT
  Age: 63 Year
  Sex: Male

DRUGS (17)
  1. HUMIRA [Suspect]
     Indication: CROHN^S DISEASE
     Dates: start: 201305
  2. PREDNISONE [Concomitant]
     Indication: RHEUMATOID ARTHRITIS
     Dosage: 20 MG DAILY
  3. PREDNISONE [Concomitant]
     Indication: CROHN^S DISEASE
  4. IMITREX [Concomitant]
     Indication: HEADACHE
     Dosage: 3 TIMES A WEEK OR AS NEEDED
     Route: 050
  5. LORTAB [Concomitant]
     Indication: PAIN
     Dosage: 7.5MG - 1 OR 2 EVERY 8 HOURS AS NEEDED
  6. JANUVIA [Concomitant]
     Indication: TYPE 2 DIABETES MELLITUS
     Dosage: 100 MG DAILY
     Route: 048
  7. NOVALOG 70/30 [Concomitant]
     Indication: PRODUCT USED FOR UNKNOWN INDICATION
     Dosage: 40 UNITS IN AM AND 20 UNITS IN PM
     Route: 058
  8. METHOTREXATE [Concomitant]
     Indication: RHEUMATOID ARTHRITIS
     Route: 048
  9. POTASSIUM [Concomitant]
     Indication: PRODUCT USED FOR UNKNOWN INDICATION
     Route: 048
  10. FOLIC ACID [Concomitant]
     Indication: RHEUMATOID ARTHRITIS
     Dosage: 1 MG DAILY
     Route: 048
  11. SULFASALAZINE [Concomitant]
     Indication: CROHN^S DISEASE
     Route: 048
  12. LOSARTAN [Concomitant]
     Indication: HYPERTENSION
     Dosage: 100/25 MG DAILY
     Route: 048
  13. CRESTOR [Concomitant]
     Indication: HYPERLIPIDAEMIA
     Dosage: 10 MG DAILY
     Route: 048
  14. LAMICTAL [Concomitant]
     Indication: DEPRESSION
     Route: 048
  15. LAMICTAL [Concomitant]
     Indication: PAIN
  16. CYMBALTA [Concomitant]
     Indication: DEPRESSION
     Dosage: 60 MG DAILY
     Route: 048
  17. ZANTAC [Concomitant]
     Indication: GASTRIC DISORDER
     Dosage: 40 MG DAILY
     Route: 048

REACTIONS (3)
  - Device malfunction [Unknown]
  - Fall [Not Recovered/Not Resolved]
  - Contusion [Not Recovered/Not Resolved]
